FAERS Safety Report 5572602-0 (Version None)
Quarter: 2007Q4

REPORT INFORMATION
  Report Type: 
  Country: None (occurrence: None)
  Receive Date: 20071130
  Receipt Date: 20070221
  Transmission Date: 20080405
  Serious: Yes (Disabling, Other)
  Sender: FDA-Public Use
  Company Number: WAES 0509USA04777

PATIENT
  Age: 68 Year
  Sex: Female

DRUGS (21)
  1. FOSAMAX [Suspect]
     Indication: OSTEOPOROSIS
     Dosage: 70 MG DAILY PO
     Route: 048
     Dates: start: 20021011, end: 20020101
  2. FOSAMAX [Suspect]
     Indication: OSTEOPOROSIS
     Dosage: 70 MG DAILY PO
     Route: 048
     Dates: start: 20040301, end: 20050401
  3. FOSAMAX [Suspect]
     Indication: OSTEOPOROSIS
     Dosage: 70 MG DAILY PO
     Route: 048
     Dates: start: 20030421
  4. ACTOS [Concomitant]
  5. DEMADEX [Concomitant]
  6. LIPITOR [Concomitant]
  7. MAVIK [Concomitant]
  8. MIRAPEX [Concomitant]
  9. OCUVITE [Concomitant]
  10. PROTONIX [Concomitant]
  11. ASPIRIN [Concomitant]
  12. CALCIUM GLUCONATE [Concomitant]
  13. CORTICOSTEROIDS [Concomitant]
  14. INSULIN [Concomitant]
  15. LYSINE [Concomitant]
  16. NIACIN [Concomitant]
  17. SELENIUM [Concomitant]
  18. SPIRONOLACTONE [Concomitant]
  19. TRIMETHOPRIM [Concomitant]
  20. VITAMIN E [Concomitant]
  21. ZINC [Concomitant]

REACTIONS (25)
  - ACCIDENTAL OVERDOSE [None]
  - ANXIETY [None]
  - ARTHRALGIA [None]
  - ASTHENIA [None]
  - BACK PAIN [None]
  - BACTERIAL INFECTION [None]
  - BALANCE DISORDER [None]
  - BLOOD CREATININE INCREASED [None]
  - BLOOD GLUCOSE INCREASED [None]
  - BLOOD UREA INCREASED [None]
  - BONE LESION [None]
  - CONSTIPATION [None]
  - DEPRESSION [None]
  - DYSPHAGIA [None]
  - EPIGASTRIC DISCOMFORT [None]
  - FATIGUE [None]
  - FLANK PAIN [None]
  - INAPPROPRIATE SCHEDULE OF DRUG ADMINISTRATION [None]
  - NAUSEA [None]
  - OSTEOMYELITIS [None]
  - OSTEONECROSIS [None]
  - PAIN IN EXTREMITY [None]
  - RASH [None]
  - SKIN ULCER [None]
  - WEIGHT INCREASED [None]
